FAERS Safety Report 13708119 (Version 1)
Quarter: 2017Q2

REPORT INFORMATION
  Report Type: Spontaneous
  Country: US (occurrence: US)
  Receive Date: 20170630
  Receipt Date: 20170630
  Transmission Date: 20170830
  Serious: No
  Sender: FDA-Public Use
  Company Number: US-PFIZER INC-2017281933

PATIENT
  Sex: Male

DRUGS (1)
  1. METHOTREXATE SODIUM. [Suspect]
     Active Substance: METHOTREXATE SODIUM
     Dosage: UNK

REACTIONS (7)
  - Drug ineffective [Unknown]
  - Joint effusion [Unknown]
  - Joint swelling [Unknown]
  - Pain [Unknown]
  - Tenderness [Unknown]
  - Joint range of motion decreased [Unknown]
  - Blood pressure increased [Unknown]
